FAERS Safety Report 7278080-8 (Version None)
Quarter: 2011Q1

REPORT INFORMATION
  Report Type: 
  Country: None (occurrence: None)
  Receive Date: 20110207
  Receipt Date: 20110125
  Transmission Date: 20110831
  Serious: Yes (Hospitalization)
  Sender: FDA-Public Use
  Company Number: MX-ELI_LILLY_AND_COMPANY-MX201101001257

PATIENT
  Sex: Male
  Weight: 74.5 kg

DRUGS (2)
  1. OLANZAPINE [Suspect]
     Indication: SCHIZOPHRENIA
     Dosage: 10 MG, DAILY (1/D)
     Route: 048
     Dates: start: 20091104, end: 20091112
  2. RISPERIDONE [Concomitant]
     Dosage: 3 MG, UNK
     Route: 048
     Dates: start: 20081018, end: 20091031

REACTIONS (1)
  - HALLUCINATION [None]
